FAERS Safety Report 10038673 (Version 1)
Quarter: 2014Q1

REPORT INFORMATION
  Report Type: Spontaneous
  Country: US (occurrence: None)
  Receive Date: 20140306
  Receipt Date: 20140306
  Transmission Date: 20141002
  Serious: Yes (Hospitalization, Disabling)
  Sender: FDA-Public Use
  Company Number: 163-21880-13070165

PATIENT
  Age: 60 Year
  Sex: Male

DRUGS (9)
  1. REVLIMID (LENALIDOMIDE) (25 MILLIGRAM, CAPSULES) [Suspect]
     Indication: PLASMA CELL MYELOMA
     Route: 048
     Dates: start: 20080813
  2. VELCADE (BORTEZOMIB) [Concomitant]
  3. ACYCLOVIR (ACICLOVIR) [Concomitant]
  4. ZOLOFT (SERTRALINE HYDROCHLORIDE) [Concomitant]
  5. AMBIEN (ZOLPIDEM TARTRATE) [Concomitant]
  6. ASPIRIN (ACETYLSALICYLIC ACID) [Concomitant]
  7. DECADRON (DEXAMETHASONE) [Concomitant]
  8. BACTRIM DS (BACTRIM) [Concomitant]
  9. CARFILZOMIB (CARFILZOMIB) [Concomitant]

REACTIONS (1)
  - Pathological fracture [None]
